FAERS Safety Report 10195492 (Version 2)
Quarter: 2014Q2

REPORT INFORMATION
  Report Type: Report from Study
  Country: FR (occurrence: FR)
  Receive Date: 20140526
  Receipt Date: 20140526
  Transmission Date: 20141212
  Serious: No
  Sender: FDA-Public Use
  Company Number: PHHY2013FR089843

PATIENT
  Age: 73 Year
  Sex: Female

DRUGS (11)
  1. AMN107 [Suspect]
     Indication: CHRONIC MYELOID LEUKAEMIA
     Dosage: 400 MG, DAILY
     Dates: start: 20120114, end: 20120126
  2. AMN107 [Suspect]
     Dosage: 400 MG, DAILY
     Dates: start: 20120221, end: 20120730
  3. AMN107 [Suspect]
     Dosage: 200 MG, DAILY
     Dates: start: 20120823, end: 20121007
  4. AMN107 [Suspect]
     Dosage: 400 MG, DAILY
     Dates: start: 20121008, end: 20121113
  5. AMN107 [Suspect]
     Dosage: 400 MG, DAILY
     Dates: start: 20121118, end: 20121122
  6. AMN107 [Suspect]
     Dosage: 200 MG, DAILY
     Dates: start: 20121127, end: 20121128
  7. AMN107 [Suspect]
     Dosage: 200 MG, DAILY
     Dates: start: 20130103, end: 20130121
  8. AMN107 [Suspect]
     Dosage: 400 MG, DAILY
     Dates: start: 20130122
  9. DEXERYL                            /00557601/ [Concomitant]
     Indication: DRY SKIN
     Dosage: UNK
     Dates: start: 20120112
  10. MACROGOL [Concomitant]
     Indication: CONSTIPATION
     Dosage: UNK
     Dates: start: 201311
  11. DEBRIDAT ^IBRAHIM^ [Concomitant]
     Indication: CONSTIPATION
     Dosage: UNK
     Dates: start: 201311

REACTIONS (1)
  - Nausea [Not Recovered/Not Resolved]
